FAERS Safety Report 7481470-1 (Version None)
Quarter: 2011Q2

REPORT INFORMATION
  Report Type: 
  Country: None (occurrence: None)
  Receive Date: 20110516
  Receipt Date: 20110509
  Transmission Date: 20111010
  Serious: Yes (Other)
  Sender: FDA-Public Use
  Company Number: PHEH2007US12144

PATIENT
  Sex: Female

DRUGS (27)
  1. FASLODEX [Concomitant]
  2. POTASSIUM CHLORIDE [Concomitant]
  3. LEVOTHYROXINE SODIUM [Concomitant]
  4. ARANESP [Concomitant]
  5. COUMADIN [Concomitant]
  6. ACETAMINOPHEN [Concomitant]
  7. CYCLOPHOSPHAMIDE [Concomitant]
  8. FEMARA [Concomitant]
  9. SYNTHROID [Concomitant]
  10. BACTRIM [Concomitant]
  11. MIRALAX [Concomitant]
  12. MELPHALAN HYDROCHLORIDE [Concomitant]
  13. ATROVENT [Concomitant]
  14. DECADRON [Concomitant]
  15. TAGAMET [Concomitant]
  16. ESTROGENS [Concomitant]
  17. ZOMETA [Suspect]
  18. CLINDAMYCIN [Concomitant]
  19. TAMOXIFEN CITRATE [Concomitant]
  20. HERCEPTIN [Concomitant]
     Dates: start: 20040816
  21. NEULASTA [Concomitant]
  22. ALDACTONE [Concomitant]
  23. ZOMETA [Suspect]
  24. NAPROXEN (ALEVE) [Concomitant]
  25. BENADRYL [Concomitant]
  26. FLAGYL [Concomitant]
  27. ALOXI [Concomitant]

REACTIONS (91)
  - NEOPLASM MALIGNANT [None]
  - METASTASES TO BONE [None]
  - ORAL PAIN [None]
  - PRODUCTIVE COUGH [None]
  - GOITRE [None]
  - ABSCESS [None]
  - INGUINAL MASS [None]
  - DIARRHOEA [None]
  - BLOOD TRIGLYCERIDES INCREASED [None]
  - BOWEL MOVEMENT IRREGULARITY [None]
  - CEREBRAL ATROPHY [None]
  - ATAXIA [None]
  - METASTASES TO LYMPH NODES [None]
  - JOINT SWELLING [None]
  - OSTEONECROSIS OF JAW [None]
  - INFECTION [None]
  - METASTASES TO CENTRAL NERVOUS SYSTEM [None]
  - BONE EROSION [None]
  - OSTEOSCLEROSIS [None]
  - INTERVERTEBRAL DISC DEGENERATION [None]
  - PRIMARY SEQUESTRUM [None]
  - COAGULOPATHY [None]
  - CELLULITIS [None]
  - TOOTH DISORDER [None]
  - ACTIVITIES OF DAILY LIVING IMPAIRED [None]
  - HYPOPHAGIA [None]
  - DYSPHAGIA [None]
  - FATIGUE [None]
  - TONGUE NEOPLASM [None]
  - VISION BLURRED [None]
  - GAIT DISTURBANCE [None]
  - METASTASIS [None]
  - DEFORMITY [None]
  - BREAST NEOPLASM [None]
  - NECK PAIN [None]
  - OEDEMA PERIPHERAL [None]
  - CONDITION AGGRAVATED [None]
  - URINARY INCONTINENCE [None]
  - WEIGHT DECREASED [None]
  - HYPOKALAEMIA [None]
  - FEMORAL NECK FRACTURE [None]
  - ALOPECIA [None]
  - SKIN ULCER [None]
  - TENOSYNOVITIS [None]
  - PAIN [None]
  - EPIDERMAL GROWTH FACTOR RECEPTOR INCREASED [None]
  - BONE LESION [None]
  - URINARY TRACT INFECTION [None]
  - ANAEMIA [None]
  - SKIN FRAGILITY [None]
  - IRON DEFICIENCY [None]
  - NAUSEA [None]
  - VOMITING [None]
  - PAIN IN EXTREMITY [None]
  - LYMPHOMA [None]
  - BONE PAIN [None]
  - DYSPNOEA EXERTIONAL [None]
  - CHRONIC OBSTRUCTIVE PULMONARY DISEASE [None]
  - PEPTIC ULCER [None]
  - ADENOCARCINOMA [None]
  - ASTHENIA [None]
  - BLOOD ALKALINE PHOSPHATASE DECREASED [None]
  - DEVICE RELATED INFECTION [None]
  - EJECTION FRACTION DECREASED [None]
  - MOUTH CYST [None]
  - PAIN IN JAW [None]
  - ABSCESS JAW [None]
  - SCOLIOSIS [None]
  - OSTEOMYELITIS [None]
  - PROTHROMBIN TIME PROLONGED [None]
  - PNEUMONIA [None]
  - MICROCYTOSIS [None]
  - BALANCE DISORDER [None]
  - FAECAL INCONTINENCE [None]
  - RESPIRATORY TRACT CONGESTION [None]
  - CHILLS [None]
  - CONVULSION [None]
  - UPPER GASTROINTESTINAL HAEMORRHAGE [None]
  - COGNITIVE DISORDER [None]
  - CONFUSIONAL STATE [None]
  - LYMPHADENOPATHY [None]
  - SINUSITIS [None]
  - OEDEMA [None]
  - CATARACT [None]
  - CENTRAL NERVOUS SYSTEM LESION [None]
  - PLEURAL EFFUSION [None]
  - PLEURAL FIBROSIS [None]
  - SYNOVIAL CYST [None]
  - PYREXIA [None]
  - CONSTIPATION [None]
  - LOWER LIMB FRACTURE [None]
